FAERS Safety Report 6273808-8 (Version None)
Quarter: 2009Q3

REPORT INFORMATION
  Report Type: 
  Country: None (occurrence: None)
  Receive Date: 20090720
  Receipt Date: 20090708
  Transmission Date: 20100115
  Serious: Yes (Other)
  Sender: FDA-Public Use
  Company Number: B0584629A

PATIENT
  Sex: Female
  Weight: 2.4 kg

DRUGS (11)
  1. RANITIDINE [Suspect]
     Indication: PROPHYLAXIS
     Dosage: 50MG CYCLIC
     Dates: start: 20090113, end: 20090205
  2. DEXAMETHASONE [Suspect]
     Indication: DRUG USE FOR UNKNOWN INDICATION
     Dosage: 20MG CYCLIC
     Dates: start: 20090112, end: 20090205
  3. CELESTONE [Suspect]
     Indication: DRUG USE FOR UNKNOWN INDICATION
     Dates: start: 20090112, end: 20090113
  4. SOLU-MEDROL [Suspect]
     Indication: PROPHYLAXIS
     Dosage: 125MG CYCLIC
     Dates: start: 20090113, end: 20090205
  5. PRIMPERAN [Suspect]
     Indication: NAUSEA
     Dosage: 10MG FOUR TIMES PER DAY
  6. ZOFRAN [Suspect]
     Indication: NAUSEA
     Dosage: 8MG PER DAY
  7. CISPLATIN [Suspect]
     Indication: GENITAL NEOPLASM MALIGNANT FEMALE
     Dosage: 140MG CYCLIC
     Dates: start: 20090113, end: 20090205
  8. PACLITAXEL [Suspect]
     Indication: GENITAL NEOPLASM MALIGNANT FEMALE
     Dosage: 330MG CYCLIC
     Dates: start: 20090113, end: 20090205
  9. TAVEGYL [Suspect]
     Indication: PROPHYLAXIS
     Dates: start: 20090113, end: 20090205
  10. LASIX [Concomitant]
     Dosage: 20MG AS REQUIRED
  11. TEMESTA [Concomitant]
     Indication: SEDATION
     Dosage: 1MG AS REQUIRED

REACTIONS (12)
  - CAESAREAN SECTION [None]
  - CONGENITAL ANOMALY [None]
  - DRUG EXPOSURE DURING PREGNANCY [None]
  - HYPOGLYCAEMIA NEONATAL [None]
  - HYPOTHERMIA [None]
  - HYPOTHERMIA NEONATAL [None]
  - IMMATURE RESPIRATORY SYSTEM [None]
  - JAUNDICE NEONATAL [None]
  - MATERNAL DRUGS AFFECTING FOETUS [None]
  - NEONATAL ASPIRATION [None]
  - NEONATAL RESPIRATORY DISTRESS SYNDROME [None]
  - PREMATURE BABY [None]
